FAERS Safety Report 4294485-1 (Version None)
Quarter: 2004Q1

REPORT INFORMATION
  Report Type: 
  Country: None (occurrence: None)
  Receive Date: 20040211
  Receipt Date: 20040202
  Transmission Date: 20041129
  Serious: Yes (Other)
  Sender: FDA-Public Use
  Company Number: NSADSS2002027149

PATIENT
  Age: 35 Year
  Sex: Male

DRUGS (5)
  1. REMICADE [Suspect]
     Indication: PSORIASIS
     Dosage: 400 MG, 1 IN 1 AS NECESSARY, INTRAVENOUS DRIP
     Route: 041
  2. ATENOLOL [Concomitant]
  3. HYDROCHLOROTHIAZIDE [Concomitant]
  4. NEURONTIN [Concomitant]
  5. DICLOFENAC SODIUM [Concomitant]

REACTIONS (4)
  - ANTINUCLEAR ANTIBODY POSITIVE [None]
  - AUTOIMMUNE HEPATITIS [None]
  - DIARRHOEA [None]
  - SMOOTH MUSCLE ANTIBODY POSITIVE [None]
